FAERS Safety Report 9249552 (Version 2)
Quarter: 2013Q2

REPORT INFORMATION
  Report Type: Spontaneous
  Country: LB (occurrence: LB)
  Receive Date: 20130423
  Receipt Date: 20130607
  Transmission Date: 20140414
  Serious: Yes (Hospitalization, Other)
  Sender: FDA-Public Use
  Company Number: LB-ABBOTT-13P-093-1079757-00

PATIENT
  Age: 23 Year
  Sex: Male
  Weight: 62 kg

DRUGS (4)
  1. HUMIRA [Suspect]
     Indication: CROHN^S DISEASE
     Dosage: LOADING DOSE
     Dates: start: 201202
  2. HUMIRA [Suspect]
     Route: 058
  3. HUMIRA [Suspect]
     Route: 058
     Dates: end: 20130325
  4. IMURAN [Concomitant]
     Indication: CROHN^S DISEASE
     Dates: start: 20120628

REACTIONS (3)
  - Testis cancer [Unknown]
  - Metastases to lung [Unknown]
  - Metastases to lymph nodes [Unknown]
